FAERS Safety Report 11171211 (Version 3)
Quarter: 2015Q4

REPORT INFORMATION
  Report Type: Spontaneous
  Country: None (occurrence: FR)
  Receive Date: 20150608
  Receipt Date: 20151224
  Transmission Date: 20160304
  Serious: Yes (Life-Threatening)
  Sender: FDA-Public Use
  Company Number: FR-MEDAC PHARMA, INC.-1039860

PATIENT
  Age: 52 Year
  Sex: Male

DRUGS (3)
  1. METOJECT [Suspect]
     Active Substance: METHOTREXATE SODIUM
     Indication: RHEUMATOID ARTHRITIS
     Route: 058
     Dates: start: 201203, end: 201410
  2. METOJECT [Suspect]
     Active Substance: METHOTREXATE SODIUM
     Route: 058
     Dates: start: 201403, end: 201410
  3. METOJECT [Suspect]
     Active Substance: METHOTREXATE SODIUM
     Route: 058
     Dates: start: 201203, end: 201403

REACTIONS (2)
  - Transaminases increased [Recovered/Resolved]
  - Nodular melanoma [Recovering/Resolving]

NARRATIVE: CASE EVENT DATE: 201304
